FAERS Safety Report 6531585-7 (Version None)
Quarter: 2010Q1

REPORT INFORMATION
  Report Type: 
  Country: None (occurrence: None)
  Receive Date: 20100107
  Receipt Date: 20100107
  Transmission Date: 20100710
  Serious: Yes (Life-Threatening)
  Sender: FDA-Public Use
  Company Number: None

PATIENT
  Age: 66 Year
  Sex: Male

DRUGS (1)
  1. ETOMIDATE [Suspect]
     Dates: start: 20091105

REACTIONS (3)
  - CARDIAC ARREST [None]
  - PAIN IN EXTREMITY [None]
  - PRURITUS [None]
